FAERS Safety Report 18665657 (Version 1)
Quarter: 2020Q4

REPORT INFORMATION
  Report Type: Spontaneous
  Country: GB (occurrence: GB)
  Receive Date: 20201226
  Receipt Date: 20201226
  Transmission Date: 20210114
  Serious: Yes (Other)
  Sender: FDA-Public Use
  Company Number: GB-ACCORD-212129

PATIENT
  Age: 18 Year
  Sex: Female

DRUGS (3)
  1. SERTRALINE [Suspect]
     Active Substance: SERTRALINE HYDROCHLORIDE
     Indication: SEROTONIN SYNDROME
     Route: 048
  2. PREGABALIN. [Concomitant]
     Active Substance: PREGABALIN
  3. FLUOXETINE [Suspect]
     Active Substance: FLUOXETINE HYDROCHLORIDE
     Indication: SEROTONIN SYNDROME
     Route: 048

REACTIONS (8)
  - Tic [Unknown]
  - Restlessness [Unknown]
  - Malaise [Unknown]
  - Muscle twitching [Unknown]
  - Irritability [Unknown]
  - Tremor [Unknown]
  - Serotonin syndrome [Recovering/Resolving]
  - Off label use [Unknown]

NARRATIVE: CASE EVENT DATE: 20201210
